FAERS Safety Report 23303930 (Version 3)
Quarter: 2025Q1

REPORT INFORMATION
  Report Type: Spontaneous
  Country: US (occurrence: US)
  Receive Date: 20231215
  Receipt Date: 20250225
  Transmission Date: 20250408
  Serious: No
  Sender: PFIZER
  Company Number: US-PFIZER INC-202300434926

PATIENT
  Age: 68 Year
  Sex: Female
  Weight: 81.633 kg

DRUGS (1)
  1. XELJANZ XR [Suspect]
     Active Substance: TOFACITINIB CITRATE
     Dosage: 11 MG, DAILY
     Route: 048

REACTIONS (3)
  - Eye pruritus [Unknown]
  - Pain [Not Recovered/Not Resolved]
  - Blood pressure increased [Unknown]
